FAERS Safety Report 12954727 (Version 2)
Quarter: 2016Q4

REPORT INFORMATION
  Report Type: Spontaneous
  Country: US (occurrence: US)
  Receive Date: 20161118
  Receipt Date: 20161214
  Transmission Date: 20170207
  Serious: Yes (Other)
  Sender: FDA-Public Use
  Company Number: US-ELI_LILLY_AND_COMPANY-US201607007786

PATIENT
  Sex: Female
  Weight: 65 kg

DRUGS (1)
  1. CYMBALTA [Suspect]
     Active Substance: DULOXETINE HYDROCHLORIDE
     Indication: PRODUCT USED FOR UNKNOWN INDICATION
     Dosage: 60 MG, QD
     Route: 065
     Dates: start: 20110811, end: 201508

REACTIONS (20)
  - Intentional self-injury [Unknown]
  - Agitation [Unknown]
  - Hallucination [Unknown]
  - Confusional state [Unknown]
  - Chills [Unknown]
  - Insomnia [Unknown]
  - Drug withdrawal syndrome [Unknown]
  - Headache [Unknown]
  - Anxiety [Unknown]
  - Nausea [Unknown]
  - Fatigue [Unknown]
  - Paraesthesia [Unknown]
  - Dizziness [Unknown]
  - Depression [Unknown]
  - Vertigo [Unknown]
  - Sleep disorder [Unknown]
  - Dysphoria [Unknown]
  - Sensory disturbance [Unknown]
  - Disturbance in attention [Unknown]
  - Drug ineffective [Unknown]
